FAERS Safety Report 13555661 (Version 1)
Quarter: 2017Q2

REPORT INFORMATION
  Report Type: Spontaneous
  Country: US (occurrence: US)
  Receive Date: 20170517
  Receipt Date: 20170517
  Transmission Date: 20170830
  Serious: Yes (Other)
  Sender: FDA-Public Use
  Company Number: US-MYLANLABS-2017M1029749

PATIENT

DRUGS (2)
  1. PREDNISONE. [Suspect]
     Active Substance: PREDNISONE
     Indication: COLITIS
     Dosage: 10MG DAILY PER ORALLY
     Route: 048
  2. DEXAMETHASONE. [Concomitant]
     Active Substance: DEXAMETHASONE
     Indication: SPEECH DISORDER
     Route: 042

REACTIONS (5)
  - Endocarditis [Recovering/Resolving]
  - Cerebral artery embolism [Recovering/Resolving]
  - Septic embolus [Recovering/Resolving]
  - Nocardiosis [Recovering/Resolving]
  - Pulmonary embolism [Recovering/Resolving]
